FAERS Safety Report 16631550 (Version 4)
Quarter: 2020Q1

REPORT INFORMATION
  Report Type: Spontaneous
  Country: US (occurrence: US)
  Receive Date: 20190725
  Receipt Date: 20200310
  Transmission Date: 20200409
  Serious: Yes (Hospitalization, Other)
  Sender: FDA-Public Use
  Company Number: US-JNJFOC-20190720588

PATIENT
  Age: 52 Year
  Sex: Male
  Weight: 71.73 kg

DRUGS (5)
  1. REMICADE [Suspect]
     Active Substance: INFLIXIMAB
     Indication: CROHN^S DISEASE
     Route: 042
     Dates: start: 1990, end: 201610
  2. ENTOCORT [Concomitant]
     Active Substance: BUDESONIDE
  3. DIFLUCAN [Concomitant]
     Active Substance: FLUCONAZOLE
  4. SIMPONI [Suspect]
     Active Substance: GOLIMUMAB
     Indication: CROHN^S DISEASE
     Route: 058
     Dates: start: 2016
  5. CELLCEPT [Concomitant]
     Active Substance: MYCOPHENOLATE MOFETIL\MYCOPHENOLATE MOFETIL HYDROCHLORIDE

REACTIONS (10)
  - Post procedural infection [Not Recovered/Not Resolved]
  - Off label use [Unknown]
  - Product use in unapproved indication [Unknown]
  - Arthropathy [Unknown]
  - Device malfunction [Not Recovered/Not Resolved]
  - Underdose [Unknown]
  - Poor quality product administered [Unknown]
  - Renal cancer [Not Recovered/Not Resolved]
  - Abdominal operation [Not Recovered/Not Resolved]
  - Accidental exposure to product [Not Recovered/Not Resolved]

NARRATIVE: CASE EVENT DATE: 201811
